FAERS Safety Report 21819153 (Version 1)
Quarter: 2023Q1

REPORT INFORMATION
  Report Type: Report from Study
  Country: IN (occurrence: IN)
  Receive Date: 20230104
  Receipt Date: 20230104
  Transmission Date: 20230418
  Serious: Yes (Other)
  Sender: FDA-Public Use
  Company Number: IN-MYLANLABS-2022M1140921

PATIENT
  Age: 11 Year
  Sex: Male

DRUGS (2)
  1. DEXAMETHASONE [Suspect]
     Active Substance: DEXAMETHASONE
     Indication: Meningitis bacterial
     Dosage: 2 MILLIGRAM, TID; THREE TIMES DAILY; INTRAVENOUS (NOT SPECIFIED)
     Route: 042
  2. CEFOTAXIME [Suspect]
     Active Substance: CEFOTAXIME SODIUM
     Indication: Meningitis bacterial
     Dosage: 500 MILLIGRAM, BID; INTRAVENOUS (NOT SPECIFIED)
     Route: 042

REACTIONS (1)
  - Stevens-Johnson syndrome [Unknown]
